FAERS Safety Report 8402745-5 (Version None)
Quarter: 2012Q2

REPORT INFORMATION
  Report Type: 
  Country: None (occurrence: None)
  Receive Date: 20120601
  Receipt Date: 20120524
  Transmission Date: 20120825
  Serious: Yes (Life-Threatening, Hospitalization)
  Sender: FDA-Public Use
  Company Number: US-BAYER-2012-014317

PATIENT
  Age: 32 Year
  Sex: Female
  Weight: 79.365 kg

DRUGS (6)
  1. XANAX [Concomitant]
     Indication: STRESS
     Dosage: 0.25 MG, QD
  2. DROSPIRENONE AND ETHINYL ESTRADIOL [Suspect]
     Dosage: UNK
     Route: 048
     Dates: start: 20080923, end: 20090713
  3. MULTIVITAMIN WITH MINERALS [Concomitant]
  4. LORTAB [Concomitant]
     Dosage: 5/500 MG EVERY 4 HRS PRN
  5. OMEGA-3 FATTY ACIDS [Concomitant]
  6. ACIPHEX [Concomitant]
     Indication: GASTROOESOPHAGEAL REFLUX DISEASE
     Dosage: 20 MG, QD

REACTIONS (9)
  - CHEST PAIN [None]
  - FEAR [None]
  - MENTAL DISORDER [None]
  - DEPRESSION [None]
  - ANHEDONIA [None]
  - DYSPNOEA [None]
  - PULMONARY EMBOLISM [None]
  - PAIN [None]
  - ANXIETY [None]
